FAERS Safety Report 4930951-0 (Version None)
Quarter: 2006Q1

REPORT INFORMATION
  Report Type: 
  Country: None (occurrence: None)
  Receive Date: 20060227
  Receipt Date: 20060217
  Transmission Date: 20060701
  Serious: Yes (Life-Threatening)
  Sender: FDA-Public Use
  Company Number: 163-20785-06020387

PATIENT
  Age: 74 Year
  Sex: Male
  Weight: 79.5 kg

DRUGS (4)
  1. THALOMID [Suspect]
     Indication: NON-SMALL CELL LUNG CANCER
     Dosage: SEE IMAGE
     Route: 048
     Dates: start: 20060117, end: 20060214
  2. PACLITAXEL [Suspect]
     Indication: NON-SMALL CELL LUNG CANCER
     Dosage: 225 MG/M2 OVER 3 HOURS ON DAY 1, Q 21 DAYS X 2, INTRAVENOUS
     Route: 042
     Dates: start: 20060117, end: 20060207
  3. CARBOPLATIN [Suspect]
     Indication: NON-SMALL CELL LUNG CANCER
     Dosage: AUC=6 OVER 15-30 MIN ON DAY 1, Q 21 DAYS X 2, INTRAVENOUS
     Route: 042
     Dates: start: 20060117, end: 20060207
  4. RADIATION THERAPY [Suspect]
     Indication: NON-SMALL CELL LUNG CANCER
     Dosage: 60 GY OVER 6 WEEKS BEGINNING BETWEEN DAYS 43 - 50

REACTIONS (1)
  - AGRANULOCYTOSIS [None]
